FAERS Safety Report 6753475-7 (Version None)
Quarter: 2010Q2

REPORT INFORMATION
  Report Type: 
  Country: None (occurrence: None)
  Receive Date: 20100603
  Receipt Date: 20100525
  Transmission Date: 20101027
  Serious: Yes (Other)
  Sender: FDA-Public Use
  Company Number: PHHY2010US34092

PATIENT
  Age: 81 Year
  Sex: Female

DRUGS (2)
  1. TEGRETOL [Suspect]
     Dosage: UNK,UNK
  2. ANTITHYROID PREPARATIONS [Suspect]
     Dosage: UNK,UNK

REACTIONS (1)
  - BLINDNESS UNILATERAL [None]
